FAERS Safety Report 13861781 (Version 2)
Quarter: 2017Q4

REPORT INFORMATION
  Report Type: Report from Study
  Country: US (occurrence: US)
  Receive Date: 20170811
  Receipt Date: 20171003
  Transmission Date: 20180320
  Serious: Yes (Hospitalization)
  Sender: FDA-Public Use
  Company Number: US-VIFOR (INTERNATIONAL) INC.-VIT-2017-08552

PATIENT
  Age: 72 Year
  Sex: Male

DRUGS (22)
  1. CARVEDILOL. [Concomitant]
     Active Substance: CARVEDILOL
  2. GABAPENTIN. [Concomitant]
     Active Substance: GABAPENTIN
  3. NIFEDIPINE. [Concomitant]
     Active Substance: NIFEDIPINE
  4. HUMULIN NOS [Concomitant]
     Active Substance: INSULIN HUMAN
  5. AMITIZA [Concomitant]
     Active Substance: LUBIPROSTONE
  6. FENTANYL. [Concomitant]
     Active Substance: FENTANYL
  7. PANTOPRAZOLE [Concomitant]
     Active Substance: PANTOPRAZOLE
  8. ATORVASTATIN [Concomitant]
     Active Substance: ATORVASTATIN
  9. ERGOCALCIFEROL. [Concomitant]
     Active Substance: ERGOCALCIFEROL
  10. CALCITROL [Concomitant]
     Active Substance: CALCITRIOL
  11. FENTANYL. [Concomitant]
     Active Substance: FENTANYL
  12. SODIUM [Concomitant]
     Active Substance: SODIUM
  13. CARVEDILOL. [Concomitant]
     Active Substance: CARVEDILOL
  14. PARACETAMOL [Concomitant]
     Active Substance: ACETAMINOPHEN
  15. VELTASSA [Suspect]
     Active Substance: PATIROMER
     Indication: HYPERKALAEMIA
     Route: 048
     Dates: start: 20160225
  16. AURYXIA [Concomitant]
     Active Substance: TETRAFERRIC TRICITRATE DECAHYDRATE
  17. CITALOPRAM [Concomitant]
     Active Substance: CITALOPRAM HYDROBROMIDE
  18. BUTRANS [Concomitant]
     Active Substance: BUPRENORPHINE
  19. SODIUM BICARBONATE. [Concomitant]
     Active Substance: SODIUM BICARBONATE
  20. LIDODERM [Concomitant]
     Active Substance: LIDOCAINE
  21. ZETIA [Concomitant]
     Active Substance: EZETIMIBE
  22. FUROSEMIDE. [Concomitant]
     Active Substance: FUROSEMIDE

REACTIONS (1)
  - Infection [Recovered/Resolved]

NARRATIVE: CASE EVENT DATE: 20170731
